FAERS Safety Report 6401572-8 (Version None)
Quarter: 2009Q4

REPORT INFORMATION
  Report Type: 
  Country: None (occurrence: None)
  Receive Date: 20091013
  Receipt Date: 20091013
  Transmission Date: 20100525
  Serious: Yes (Hospitalization, Disabling, Other)
  Sender: FDA-Public Use
  Company Number: None

PATIENT
  Sex: Female
  Weight: 63.5036 kg

DRUGS (2)
  1. BONIVA [Suspect]
     Indication: OSTEOPENIA
     Dosage: 1 MONTHLY PO
     Route: 048
     Dates: start: 20061201, end: 20061201
  2. BONIVA [Suspect]
     Dates: start: 20070101, end: 20070101

REACTIONS (3)
  - MUSCLE SPASMS [None]
  - NEPHROLITHIASIS [None]
  - TOOTH DISORDER [None]
